FAERS Safety Report 9995850 (Version 1)
Quarter: 2014Q1

REPORT INFORMATION
  Report Type: Spontaneous
  Country: US (occurrence: None)
  Receive Date: 20140310
  Receipt Date: 20140310
  Transmission Date: 20141002
  Serious: Yes (Hospitalization)
  Sender: FDA-Public Use
  Company Number: None

PATIENT
  Age: 61 Year
  Sex: Male
  Weight: 79.3 kg

DRUGS (11)
  1. OXALIPLATIN 162.3MG IN D5W 500ML [Suspect]
     Indication: CHEMOTHERAPY
     Dosage: 162.3MG/500ML D5W INFUSED OVER 2 H
     Route: 042
     Dates: start: 20140108, end: 20140108
  2. LEUCOVORIN [Concomitant]
  3. ONDANSETRON [Concomitant]
  4. DEXAMETHASONE [Concomitant]
  5. CIPROFLOXACIN [Concomitant]
  6. LANSOPRAZOLE [Concomitant]
  7. LOPERAMIDE [Concomitant]
  8. MULTIVITAMIN [Concomitant]
  9. PERCOCET [Concomitant]
  10. TAMOXIFEN [Concomitant]
  11. WARFARIN [Concomitant]

REACTIONS (5)
  - Renal infarct [None]
  - Nephrolithiasis [None]
  - Bladder dilatation [None]
  - Pyelonephritis [None]
  - Infusion related reaction [None]
